FAERS Safety Report 18596004 (Version 1)
Quarter: 2020Q4

REPORT INFORMATION
  Report Type: Spontaneous
  Country: US (occurrence: US)
  Receive Date: 20201209
  Receipt Date: 20201209
  Transmission Date: 20210114
  Serious: No
  Sender: FDA-Public Use
  Company Number: US-SUPERNUS PHARMACEUTICALS, INC.-2020SUP00287

PATIENT
  Age: 48 Year
  Sex: Female
  Weight: 47.62 kg

DRUGS (6)
  1. TROKENDI XR [Suspect]
     Active Substance: TOPIRAMATE
     Indication: MIGRAINE
     Dosage: 50 MG, 1X/DAY (TOTAL DAILY DOSE OF 150 MG)
     Route: 048
     Dates: start: 20200903, end: 20200914
  2. SPRYCEL [Concomitant]
     Active Substance: DASATINIB
  3. TROKENDI XR [Suspect]
     Active Substance: TOPIRAMATE
     Indication: MIGRAINE
     Dosage: 100 MG, 1X/DAY (TOTAL DAILY DOSE OF 150 MG)
     Route: 048
     Dates: start: 20200903, end: 20200914
  4. METHYLPREDNISOLONE. [Concomitant]
     Active Substance: METHYLPREDNISOLONE
  5. LAMOTRIGINE. [Concomitant]
     Active Substance: LAMOTRIGINE
  6. STELARA [Concomitant]
     Active Substance: USTEKINUMAB

REACTIONS (6)
  - Erythema [Recovering/Resolving]
  - Ocular hyperaemia [Recovering/Resolving]
  - Periorbital swelling [Recovering/Resolving]
  - Swelling face [Recovering/Resolving]
  - Hypersensitivity [Recovering/Resolving]
  - Eye swelling [Recovering/Resolving]

NARRATIVE: CASE EVENT DATE: 202009
